FAERS Safety Report 21498981 (Version 1)
Quarter: 2022Q4

REPORT INFORMATION
  Report Type: Report from Study
  Country: US (occurrence: None)
  Receive Date: 20221024
  Receipt Date: 20221024
  Transmission Date: 20230113
  Serious: Yes (Other)
  Sender: FDA-Public Use
  Company Number: US-Merck Healthcare KGaA-9355687

PATIENT
  Age: 73 Year
  Sex: Female

DRUGS (5)
  1. TEPMETKO [Suspect]
     Active Substance: TEPOTINIB HYDROCHLORIDE
     Indication: Lung neoplasm malignant
     Dates: start: 20220920
  2. PERCODAN [Concomitant]
     Active Substance: ASPIRIN\OXYCODONE HYDROCHLORIDE
     Indication: Product used for unknown indication
  3. ALLOPURINOL [Concomitant]
     Active Substance: ALLOPURINOL
     Indication: Product used for unknown indication
  4. IBUPROFEN [Concomitant]
     Active Substance: IBUPROFEN
     Indication: Product used for unknown indication
  5. DICLOFENAC [Concomitant]
     Active Substance: DICLOFENAC
     Indication: Product used for unknown indication
     Dosage: GEL

REACTIONS (8)
  - Thrombosis [Unknown]
  - Joint swelling [Unknown]
  - Peripheral swelling [Unknown]
  - Myalgia [Unknown]
  - Hiccups [Recovered/Resolved]
  - Cough [Unknown]
  - Musculoskeletal chest pain [Unknown]
  - Fatigue [Unknown]

NARRATIVE: CASE EVENT DATE: 20221013
